FAERS Safety Report 9760120 (Version 2)
Quarter: 2014Q3

REPORT INFORMATION
  Report Type: Spontaneous
  Country: FR (occurrence: None)
  Receive Date: 20131212
  Receipt Date: 20140815
  Transmission Date: 20150326
  Serious: Yes (Life-Threatening, Hospitalization)
  Sender: FDA-Public Use
  Company Number: 2058109

PATIENT
  Age: 45 Year
  Sex: Female
  Weight: 54 kg

DRUGS (7)
  1. PACLITAXEL. [Suspect]
     Active Substance: PACLITAXEL
     Indication: GASTROINTESTINAL CARCINOMA
     Dates: start: 20130813
  2. APREPITANT [Suspect]
     Active Substance: APREPITANT
     Indication: PRODUCT USED FOR UNKNOWN INDICATION
     Dosage: CYCLICAL
     Route: 048
     Dates: start: 20130313
  3. DEXCHLORPHENIRAMINE MALEATE. [Suspect]
     Active Substance: DEXCHLORPHENIRAMINE MALEATE
     Indication: PRODUCT USED FOR UNKNOWN INDICATION
     Route: 042
     Dates: start: 20130313
  4. METHYLPREDNISOLONE SODIUM SUCCINATE. [Suspect]
     Active Substance: METHYLPREDNISOLONE SODIUM SUCCINATE
     Indication: GASTROINTESTINAL CARCINOMA
     Dosage: 1 WEEK
     Route: 048
     Dates: start: 20130813, end: 20130813
  5. RANITIDINE HYDROCHLORIDE. [Suspect]
     Active Substance: RANITIDINE HYDROCHLORIDE
     Indication: GASTROINTESTINAL CARCINOMA
     Dosage: 1 WEEK
     Route: 042
     Dates: start: 20130813, end: 20130813
  6. ONDANSETRON [Suspect]
     Active Substance: ONDANSETRON
     Indication: GASTROINTESTINAL CARCINOMA
     Dates: start: 20130813
  7. CARBOPLATIN. [Suspect]
     Active Substance: CARBOPLATIN
     Indication: GASTROINTESTINAL CARCINOMA
     Dates: start: 20130813

REACTIONS (4)
  - Pruritus generalised [None]
  - Pharyngeal disorder [None]
  - Off label use [None]
  - Pain [None]

NARRATIVE: CASE EVENT DATE: 20130813
